FAERS Safety Report 8855939 (Version 1)
Quarter: 2012Q4

REPORT INFORMATION
  Report Type: 
  Country: US (occurrence: US)
  Receive Date: 20121023
  Receipt Date: 20121023
  Transmission Date: 20130627
  Serious: No
  Sender: FDA-Public Use
  Company Number: US-AMGEN-USASP2012058308

PATIENT
  Age: 61 Year
  Sex: Female

DRUGS (4)
  1. ENBREL [Suspect]
     Indication: RHEUMATOID ARTHRITIS
     Dosage: 25 mg, 2 times/wk
     Route: 058
     Dates: start: 20010415, end: 20061215
  2. METHOTREXATE [Concomitant]
     Dosage: UNK
  3. LEUKOVORIN [Concomitant]
     Dosage: UNK
  4. REMICADE [Concomitant]
     Dosage: UNK

REACTIONS (6)
  - Drug effect incomplete [Not Recovered/Not Resolved]
  - Pain in extremity [Not Recovered/Not Resolved]
  - Wrist deformity [Unknown]
  - Arthropathy [Unknown]
  - Fatigue [Unknown]
  - Mobility decreased [Unknown]
